FAERS Safety Report 13864464 (Version 2)
Quarter: 2017Q3

REPORT INFORMATION
  Report Type: Spontaneous
  Country: US (occurrence: US)
  Receive Date: 20170814
  Receipt Date: 20170911
  Transmission Date: 20171127
  Serious: No
  Sender: FDA-Public Use
  Company Number: PHEH2017US025457

PATIENT
  Sex: Female
  Weight: 56.69 kg

DRUGS (1)
  1. LATANOPROST. [Suspect]
     Active Substance: LATANOPROST
     Indication: GLAUCOMA
     Dosage: 1 GTT, QHS
     Route: 047
     Dates: start: 20170523

REACTIONS (1)
  - Intraocular pressure increased [Unknown]
